FAERS Safety Report 21982862 (Version 1)
Quarter: 2023Q1

REPORT INFORMATION
  Report Type: Spontaneous
  Country: RO (occurrence: RO)
  Receive Date: 20230213
  Receipt Date: 20230213
  Transmission Date: 20230417
  Serious: Yes (Hospitalization)
  Sender: FDA-Public Use
  Company Number: RO-Zentiva-2023-ZT-002027

PATIENT
  Age: 69 Year
  Sex: Female
  Weight: 46 kg

DRUGS (4)
  1. PEMETREXED [Suspect]
     Active Substance: PEMETREXED
     Indication: Non-small cell lung cancer
     Dosage: UNK Q3W
     Route: 065
     Dates: start: 20210806
  2. CARBOPLATIN [Suspect]
     Active Substance: CARBOPLATIN
     Indication: Non-small cell lung cancer
     Dosage: UNK AUC 5 Q3W
     Route: 065
     Dates: start: 20210806, end: 20211011
  3. CYANOCOBALAMIN [Suspect]
     Active Substance: CYANOCOBALAMIN
     Indication: Product used for unknown indication
     Dosage: UNK
     Route: 065
  4. RETIFANLIMAB [Suspect]
     Active Substance: RETIFANLIMAB
     Indication: Non-small cell lung cancer
     Dosage: UNK EVERY 3 WEEKS
     Route: 065
     Dates: start: 20210806

REACTIONS (2)
  - Abscess limb [Recovered/Resolved]
  - Pyrexia [Recovered/Resolved]

NARRATIVE: CASE EVENT DATE: 20221012
